FAERS Safety Report 23810126 (Version 1)
Quarter: 2024Q2

REPORT INFORMATION
  Report Type: Spontaneous
  Country: US (occurrence: US)
  Receive Date: 20240502
  Receipt Date: 20240502
  Transmission Date: 20240716
  Serious: No
  Sender: FDA-Public Use
  Company Number: US-FreseniusKabi-FK202406770

PATIENT
  Age: 72 Year
  Sex: Female
  Weight: 55 kg

DRUGS (1)
  1. POLOCAINE-MPF [Suspect]
     Active Substance: MEPIVACAINE HYDROCHLORIDE
     Indication: Spinal anaesthesia
     Dosage: FORM OF ADMIN: INJECTION?4/22/24@0736 ; INTRASPINAL 22GAUGE, X1 ; SCOLOSIS NOTED.?L3-4 UNSUCCESSFUL
     Dates: start: 20240422

REACTIONS (2)
  - Drug ineffective [Recovered/Resolved]
  - Off label use [Unknown]
